FAERS Safety Report 10994897 (Version 1)
Quarter: 2015Q2

REPORT INFORMATION
  Report Type: Spontaneous
  Country: GB (occurrence: GB)
  Receive Date: 20150407
  Receipt Date: 20150407
  Transmission Date: 20150821
  Serious: Yes (Disabling, Other)
  Sender: FDA-Public Use
  Company Number: GB-TEVA-552972ACC

PATIENT
  Age: 47 Year
  Sex: Female
  Weight: 63.5 kg

DRUGS (8)
  1. ALENDRONATE [Suspect]
     Active Substance: ALENDRONATE SODIUM
     Indication: OSTEOPENIA
     Dosage: 70 MILLIGRAM 1 IN 1 WK
     Route: 048
     Dates: start: 20150301, end: 20150316
  2. FYBOGEL [Concomitant]
     Active Substance: PLANTAGO OVATA SEED
  3. LETROZOLE. [Concomitant]
     Active Substance: LETROZOLE
  4. PARACETAMOL [Concomitant]
     Active Substance: ACETAMINOPHEN
  5. SENNA EXTRACT [Concomitant]
  6. PREGABALIN. [Concomitant]
     Active Substance: PREGABALIN
  7. HYDROXYCHLOROQUINE SULPHATE [Concomitant]
     Active Substance: HYDROXYCHLOROQUINE
  8. IBUPROFEN. [Concomitant]
     Active Substance: IBUPROFEN

REACTIONS (3)
  - Rheumatoid arthritis [Not Recovered/Not Resolved]
  - Arthralgia [Not Recovered/Not Resolved]
  - Myalgia [Not Recovered/Not Resolved]

NARRATIVE: CASE EVENT DATE: 20150301
